FAERS Safety Report 20830115 (Version 1)
Quarter: 2022Q2

REPORT INFORMATION
  Report Type: Report from Study
  Country: GB (occurrence: GB)
  Receive Date: 20220514
  Receipt Date: 20220514
  Transmission Date: 20220721
  Serious: Yes (Other)
  Sender: FDA-Public Use
  Company Number: GB-NOVARTISPH-NVSC2022GB104484

PATIENT
  Age: 85 Year
  Sex: Female

DRUGS (1)
  1. BEOVU [Suspect]
     Active Substance: BROLUCIZUMAB-DBLL
     Indication: Neovascular age-related macular degeneration
     Dosage: 6 MG, QMO
     Route: 047
     Dates: start: 20220503

REACTIONS (4)
  - Seizure [Unknown]
  - Fall [Unknown]
  - Swelling of eyelid [Recovering/Resolving]
  - Lacrimation increased [Unknown]

NARRATIVE: CASE EVENT DATE: 20220503
